FAERS Safety Report 18740695 (Version 3)
Quarter: 2021Q2

REPORT INFORMATION
  Report Type: Spontaneous
  Country: US (occurrence: US)
  Receive Date: 20210114
  Receipt Date: 20210415
  Transmission Date: 20210717
  Serious: No
  Sender: FDA-Public Use
  Company Number: US-KYOWAKIRIN-2021BKK000201

PATIENT

DRUGS (1)
  1. NOURIANZ [Suspect]
     Active Substance: ISTRADEFYLLINE
     Indication: PARKINSON^S DISEASE
     Dosage: 40 MG, QD
     Route: 048
     Dates: start: 20201215

REACTIONS (5)
  - Soliloquy [Not Recovered/Not Resolved]
  - Product dose omission issue [Unknown]
  - Confusional state [Unknown]
  - Amnesia [Unknown]
  - Drug interaction [Not Recovered/Not Resolved]
